FAERS Safety Report 7178369-7 (Version None)
Quarter: 2010Q4

REPORT INFORMATION
  Report Type: 
  Country: None (occurrence: None)
  Receive Date: 20101220
  Receipt Date: 20101207
  Transmission Date: 20110411
  Serious: Yes (Hospitalization, Other)
  Sender: FDA-Public Use
  Company Number: ZA-ELI_LILLY_AND_COMPANY-ZA201012001865

PATIENT
  Age: 11 Year
  Sex: Female

DRUGS (2)
  1. STRATTERA [Suspect]
     Dosage: 40 MG, UNK
     Dates: start: 20100701
  2. STRATTERA [Suspect]
     Dosage: 60 MG, UNK

REACTIONS (1)
  - CHEST PAIN [None]
